FAERS Safety Report 8608191-3 (Version None)
Quarter: 2012Q3

REPORT INFORMATION
  Report Type: 
  Country: None (occurrence: None)
  Receive Date: 20120821
  Receipt Date: 20120814
  Transmission Date: 20120928
  Serious: No
  Sender: FDA-Public Use
  Company Number: US-BAYER-2012-084670

PATIENT

DRUGS (4)
  1. TYLENOL (CAPLET) [Concomitant]
  2. MOTRIN [Concomitant]
  3. ALEVE (CAPLET) [Suspect]
     Indication: PAIN
     Route: 048
  4. ADVIL [Concomitant]

REACTIONS (1)
  - PAIN [None]
